FAERS Safety Report 13755103 (Version 2)
Quarter: 2018Q1

REPORT INFORMATION
  Report Type: Report from Study
  Country: US (occurrence: US)
  Receive Date: 20170714
  Receipt Date: 20180206
  Transmission Date: 20180508
  Serious: Yes (Other)
  Sender: FDA-Public Use
  Company Number: US-CIPLA LTD.-2017US12094

PATIENT

DRUGS (6)
  1. CAPECITABINE. [Interacting]
     Active Substance: CAPECITABINE
     Dosage: 750 MG/M2 BY MOUTH TWICE DAILY (ROUNDED TO THE NEAREST 500 MG)
     Route: 048
  2. ETOPOSIDE. [Suspect]
     Active Substance: ETOPOSIDE
     Indication: SMALL CELL CARCINOMA
     Dosage: UNK
     Route: 065
  3. CELECOXIB. [Interacting]
     Active Substance: CELECOXIB
     Indication: NEOPLASM OF THYMUS
     Dosage: 200 MG, BID, DAY 1 TO DAY 14 ON 21 DAY CYCLE
     Route: 048
  4. CARBOPLATIN. [Suspect]
     Active Substance: CARBOPLATIN
     Indication: SMALL CELL CARCINOMA
     Dosage: UNK
     Route: 065
  5. CAPECITABINE. [Interacting]
     Active Substance: CAPECITABINE
     Indication: NEOPLASM OF THYMUS
     Dosage: 1000 MG/M2, BID, DAY 1 TO DAY 14 ON A 21 DAY CYCLE
     Route: 048
  6. PACLITAXEL. [Suspect]
     Active Substance: PACLITAXEL
     Indication: NEOPLASM RECURRENCE
     Dosage: UNK
     Route: 065

REACTIONS (4)
  - Palmar-plantar erythrodysaesthesia syndrome [Unknown]
  - Drug interaction [Unknown]
  - Neoplasm recurrence [Unknown]
  - Malignant neoplasm progression [Unknown]
